FAERS Safety Report 11746625 (Version 1)
Quarter: 2015Q4

REPORT INFORMATION
  Report Type: Spontaneous
  Country: US (occurrence: None)
  Receive Date: 20151116
  Receipt Date: 20151116
  Transmission Date: 20160304
  Serious: Yes (Life-Threatening, Other)
  Sender: FDA-Public Use
  Company Number: None

PATIENT
  Age: 36 Year
  Sex: Female
  Weight: 78.02 kg

DRUGS (3)
  1. IRON [Concomitant]
     Active Substance: IRON
  2. REGLAN [Suspect]
     Active Substance: METOCLOPRAMIDE HYDROCHLORIDE
     Indication: PROPHYLAXIS OF NAUSEA AND VOMITING
  3. FOLIC ACID B-12 [Concomitant]

REACTIONS (4)
  - Somnolence [None]
  - Tremor [None]
  - Speech disorder [None]
  - Heart rate increased [None]

NARRATIVE: CASE EVENT DATE: 20151106
